FAERS Safety Report 10841025 (Version 1)
Quarter: 2015Q1

REPORT INFORMATION
  Report Type: Report from Study
  Country: US (occurrence: US)
  Receive Date: 20150220
  Receipt Date: 20150220
  Transmission Date: 20150721
  Serious: Yes (Hospitalization, Other)
  Sender: FDA-Public Use
  Company Number: US-ABBVIE-14P-163-1238676-00

PATIENT
  Age: 42 Year
  Sex: Female
  Weight: 90.8 kg

DRUGS (5)
  1. DEXILANT [Concomitant]
     Active Substance: DEXLANSOPRAZOLE
     Indication: PRODUCT USED FOR UNKNOWN INDICATION
  2. HUMIRA [Suspect]
     Active Substance: ADALIMUMAB
     Indication: CROHN^S DISEASE
     Dates: start: 2007
  3. PRENATAL VITAMIN [Concomitant]
     Active Substance: VITAMINS
     Indication: PRODUCT USED FOR UNKNOWN INDICATION
  4. ZYRTEC [Concomitant]
     Active Substance: CETIRIZINE HYDROCHLORIDE
     Indication: PRODUCT USED FOR UNKNOWN INDICATION
  5. PULMOCORTISON INY [Concomitant]
     Indication: PRODUCT USED FOR UNKNOWN INDICATION

REACTIONS (21)
  - Vomiting [Recovering/Resolving]
  - Liver function test abnormal [Unknown]
  - Mucous stools [Recovering/Resolving]
  - Blood pressure increased [Recovered/Resolved]
  - Dehydration [Recovered/Resolved]
  - Insomnia [Unknown]
  - C-reactive protein increased [Unknown]
  - Gastrooesophageal reflux disease [Recovered/Resolved]
  - Glucose tolerance test abnormal [Recovered/Resolved]
  - Rectal fissure [Unknown]
  - Oedema [Recovered/Resolved]
  - Diarrhoea [Recovering/Resolving]
  - Arthralgia [Recovering/Resolving]
  - Crohn^s disease [Recovering/Resolving]
  - Weight decreased [Unknown]
  - Asthma [Recovered/Resolved]
  - Weight increased [Unknown]
  - Stool analysis abnormal [Unknown]
  - Crohn^s disease [Recovering/Resolving]
  - Crohn^s disease [Recovering/Resolving]
  - Stress [Unknown]

NARRATIVE: CASE EVENT DATE: 2014
